FAERS Safety Report 20996693 (Version 5)
Quarter: 2023Q2

REPORT INFORMATION
  Report Type: Spontaneous
  Country: JP (occurrence: JP)
  Receive Date: 20220623
  Receipt Date: 20230606
  Transmission Date: 20230722
  Serious: Yes (Life-Threatening, Hospitalization, Disabling, Other)
  Sender: FDA-Public Use
  Company Number: JP-BRISTOL-MYERS SQUIBB COMPANY-2022-041576

PATIENT
  Age: 81 Year
  Sex: Female
  Weight: 41 kg

DRUGS (5)
  1. YERVOY [Suspect]
     Active Substance: IPILIMUMAB
     Indication: Non-small cell lung cancer recurrent
     Route: 041
     Dates: start: 20220511, end: 20220511
  2. OPDIVO [Suspect]
     Active Substance: NIVOLUMAB
     Indication: Non-small cell lung cancer recurrent
     Route: 041
     Dates: start: 20220511, end: 20220511
  3. ANAMORELIN HYDROCHLORIDE [Suspect]
     Active Substance: ANAMORELIN HYDROCHLORIDE
     Indication: Non-small cell lung cancer recurrent
     Dosage: FREQUENCY: EVERYDAY
     Route: 048
     Dates: start: 20220510, end: 20220513
  4. ANAMORELIN HYDROCHLORIDE [Suspect]
     Active Substance: ANAMORELIN HYDROCHLORIDE
     Indication: Cachexia
  5. DESLANOSIDE [Suspect]
     Active Substance: DESLANOSIDE
     Indication: Product used for unknown indication
     Route: 042

REACTIONS (7)
  - Cardiac failure [Not Recovered/Not Resolved]
  - Stress cardiomyopathy [Recovered/Resolved]
  - Pneumonia staphylococcal [Recovered/Resolved]
  - Ischaemic hepatitis [Recovered/Resolved]
  - Staphylococcal infection [Recovered/Resolved]
  - Device related infection [Recovered/Resolved]
  - Dehydration [Recovering/Resolving]

NARRATIVE: CASE EVENT DATE: 20220513
